FAERS Safety Report 8318651-0 (Version None)
Quarter: 2012Q2

REPORT INFORMATION
  Report Type: 
  Country: None (occurrence: None)
  Receive Date: 20120427
  Receipt Date: 20120419
  Transmission Date: 20120825
  Serious: Yes (Hospitalization, Other)
  Sender: FDA-Public Use
  Company Number: FR-ASTRAZENECA-2012SE26271

PATIENT
  Age: 61 Year
  Sex: Female

DRUGS (3)
  1. THERALITHE [Suspect]
     Indication: BIPOLAR I DISORDER
     Route: 048
  2. QUETIAPINE FUMARATE [Suspect]
     Dosage: DOSE INCREASED POGRESSIVELY
     Route: 048
     Dates: start: 20120118, end: 20120207
  3. QUETIAPINE FUMARATE [Suspect]
     Indication: BIPOLAR I DISORDER
     Route: 048
     Dates: start: 20120118

REACTIONS (5)
  - CONFUSIONAL STATE [None]
  - ELECTROENCEPHALOGRAM ABNORMAL [None]
  - THYMUS DISORDER [None]
  - CEREBRAL ATROPHY [None]
  - ELECTROCARDIOGRAM ABNORMAL [None]
